FAERS Safety Report 13213831 (Version 1)
Quarter: 2017Q1

REPORT INFORMATION
  Report Type: Spontaneous
  Country: US (occurrence: US)
  Receive Date: 20170209
  Receipt Date: 20170209
  Transmission Date: 20170428
  Serious: No
  Sender: FDA-Public Use
  Company Number: US-ALLERGAN-1666173US

PATIENT
  Age: 6 Decade
  Sex: Female

DRUGS (2)
  1. JUVEDERM [Concomitant]
     Active Substance: HYALURONIC ACID
     Dosage: UNK, SINGLE
     Route: 030
  2. BOTOX COSMETIC [Suspect]
     Active Substance: ONABOTULINUMTOXINA
     Indication: PRODUCT USED FOR UNKNOWN INDICATION
     Dosage: 2.5 UNITS, SINGLE
     Route: 030

REACTIONS (2)
  - Off label use [Unknown]
  - Drug ineffective [Unknown]
